FAERS Safety Report 9470471 (Version 2)
Quarter: 2013Q4

REPORT INFORMATION
  Report Type: Spontaneous
  Country: IT (occurrence: None)
  Receive Date: 20130815
  Receipt Date: 20131002
  Transmission Date: 20140711
  Serious: Yes (Other)
  Sender: FDA-Public Use
  Company Number: DSM-2013-00742

PATIENT
  Age: 84 Year
  Sex: Male

DRUGS (6)
  1. OLMESARTAN MEDOXOMIL (OLMESARTAN MEDOXOMIL) (TABLET) (OLMESARTAN MEDOXOMIL) [Suspect]
     Indication: PRODUCT USED FOR UNKNOWN INDICATION
     Dosage: (1 DOSAGE FORMS, 1 IN 1 D)
     Route: 048
     Dates: start: 20120701, end: 20130630
  2. AMLODIPINE BESILATE (AMLODIPINE BESILATE) (TABLET) (AMLODIPINE BESILATE) [Suspect]
     Indication: PRODUCT USED FOR UNKNOWN INDICATION
     Dosage: (1 DOSAGE FORMS, 1 IN 1 D)
     Route: 048
     Dates: start: 20120701, end: 20130630
  3. RIOPAN [Concomitant]
  4. ASCRIPTIN [Concomitant]
  5. PANTOPRAZOLE [Concomitant]
  6. INDOMETHACIN [Concomitant]

REACTIONS (2)
  - Hyponatraemia [None]
  - Syncope [None]
